FAERS Safety Report 6181364-8 (Version None)
Quarter: 2009Q2

REPORT INFORMATION
  Report Type: 
  Country: None (occurrence: None)
  Receive Date: 20090506
  Receipt Date: 20090430
  Transmission Date: 20091009
  Serious: Yes (Hospitalization, Other)
  Sender: FDA-Public Use
  Company Number: US-ELI_LILLY_AND_COMPANY-US200905000042

PATIENT
  Sex: Male

DRUGS (12)
  1. HUMALOG [Suspect]
     Dosage: UNK, 4/D
     Dates: start: 20050101
  2. CALCIUM [Concomitant]
     Dosage: 100 UNK, UNK
  3. MAGNESIUM SULFATE [Concomitant]
     Dosage: 800 U, 2/D
  4. MACROBID [Concomitant]
  5. ATIVAN [Concomitant]
  6. CARAFATE [Concomitant]
  7. LASIX [Concomitant]
     Dosage: 40 MG, 2/D
  8. POTASSIUM CHLORIDE [Concomitant]
  9. SPIRONOLACTONE [Concomitant]
     Dosage: 25 MG, 2/D
  10. DIOVAN [Concomitant]
  11. LANTUS [Concomitant]
     Dosage: 120 U, EACH EVENING
  12. LANTUS [Concomitant]
     Dosage: UNK, AS NEEDED

REACTIONS (7)
  - BLINDNESS TRANSIENT [None]
  - BLOOD GLUCOSE DECREASED [None]
  - CARDIAC DISORDER [None]
  - CELLULITIS [None]
  - DYSPNOEA [None]
  - LOCALISED INFECTION [None]
  - VISUAL IMPAIRMENT [None]
